FAERS Safety Report 16403838 (Version 2)
Quarter: 2019Q3

REPORT INFORMATION
  Report Type: Other
  Country: AT (occurrence: AT)
  Receive Date: 20190607
  Receipt Date: 20190711
  Transmission Date: 20191004
  Serious: Yes (Life-Threatening)
  Sender: FDA-Public Use
  Company Number: AT-CELLTRION INC.-2019AT021769

PATIENT

DRUGS (1)
  1. REMSIMA [Suspect]
     Active Substance: INFLIXIMAB
     Indication: ANKYLOSING SPONDYLITIS
     Dosage: 400 MG
     Route: 042
     Dates: start: 201110, end: 201812

REACTIONS (4)
  - Cardiolipin antibody [Recovered/Resolved]
  - Cerebral infarction [Recovered/Resolved]
  - Antiphospholipid syndrome [Recovered/Resolved]
  - Blood immunoglobulin M increased [Recovered/Resolved]

NARRATIVE: CASE EVENT DATE: 201812
